FAERS Safety Report 6160008-5 (Version None)
Quarter: 2009Q2

REPORT INFORMATION
  Report Type: 
  Country: None (occurrence: None)
  Receive Date: 20090416
  Receipt Date: 20090402
  Transmission Date: 20091009
  Serious: Yes (Other)
  Sender: FDA-Public Use
  Company Number: 6049479

PATIENT
  Age: 40 Year
  Sex: Female

DRUGS (2)
  1. EUTIROX (50 MICROGRAM) (LEVOTHYROXINE SODIUM) [Suspect]
     Indication: HYPOTHYROIDISM
     Dosage: 50 MCG (50 MCG, 1 IN 1 D) ORAL; 12.5 MCG (12.5 MCG, 1 IN 1 D) ORAL
     Route: 048
     Dates: start: 20090224, end: 20090225
  2. EUTIROX (50 MICROGRAM) (LEVOTHYROXINE SODIUM) [Suspect]
     Indication: HYPOTHYROIDISM
     Dosage: 50 MCG (50 MCG, 1 IN 1 D) ORAL; 12.5 MCG (12.5 MCG, 1 IN 1 D) ORAL
     Route: 048
     Dates: start: 20090227, end: 20090228

REACTIONS (4)
  - LIP SWELLING [None]
  - PARAESTHESIA [None]
  - REACTION TO DRUG EXCIPIENTS [None]
  - TRISMUS [None]
